FAERS Safety Report 21967639 (Version 2)
Quarter: 2023Q1

REPORT INFORMATION
  Report Type: Spontaneous
  Country: FR (occurrence: FR)
  Receive Date: 20230208
  Receipt Date: 20230316
  Transmission Date: 20230418
  Serious: Yes (Hospitalization)
  Sender: FDA-Public Use
  Company Number: None

PATIENT

DRUGS (1)
  1. VOCABRIA [Suspect]
     Active Substance: CABOTEGRAVIR SODIUM
     Indication: HIV infection
     Dosage: 600 MG, Z,2 MONTH
     Route: 030
     Dates: start: 20221230, end: 20221230

REACTIONS (2)
  - Muscle injury [Recovering/Resolving]
  - Immunisation reaction [Recovered/Resolved]

NARRATIVE: CASE EVENT DATE: 20230103
